FAERS Safety Report 5871574-9 (Version None)
Quarter: 2008Q3

REPORT INFORMATION
  Report Type: 
  Country: None (occurrence: None)
  Receive Date: 20080905
  Receipt Date: 20080516
  Transmission Date: 20090109
  Serious: No
  Sender: FDA-Public Use
  Company Number: A0728314A

PATIENT
  Sex: Male

DRUGS (10)
  1. REQUIP [Suspect]
     Indication: RESTLESS LEGS SYNDROME
     Dosage: 1MG TWICE PER DAY
     Route: 048
     Dates: start: 20071101
  2. LYRICA [Concomitant]
  3. SYNTHROID [Concomitant]
  4. ENALAPRIL MALEATE [Concomitant]
  5. MECLIZINE [Concomitant]
  6. GEODON [Concomitant]
  7. ABILIFY [Concomitant]
  8. ZYPREXA [Concomitant]
  9. AVODART [Concomitant]
  10. TRIAMCINOLONE [Concomitant]

REACTIONS (2)
  - DRUG INEFFECTIVE [None]
  - PAIN IN EXTREMITY [None]
